FAERS Safety Report 8092136-1 (Version None)
Quarter: 2011Q4

REPORT INFORMATION
  Report Type: 
  Country: None (occurrence: None)
  Receive Date: 20111221
  Receipt Date: 20110615
  Transmission Date: 20120403
  Serious: Yes (Hospitalization)
  Sender: FDA-Public Use
  Company Number: PHHY2011US44823

PATIENT
  Age: 53 Year
  Sex: Male
  Weight: 75.3 kg

DRUGS (3)
  1. EXJADE [Suspect]
     Indication: IRON OVERLOAD
     Dosage: 2500 MG, DAILY, ORAL
     Route: 048
     Dates: start: 20070101, end: 20110520
  2. SODIUM BICARBONATE IN PLASTIC CONTAINER [Concomitant]
  3. ATIVAN [Concomitant]

REACTIONS (2)
  - BLOOD CREATININE INCREASED [None]
  - CREATININE RENAL CLEARANCE DECREASED [None]
